FAERS Safety Report 6116864-X (Version None)
Quarter: 2009Q1

REPORT INFORMATION
  Report Type: 
  Country: None (occurrence: None)
  Receive Date: 20090314
  Receipt Date: 20081229
  Transmission Date: 20090719
  Serious: No
  Sender: FDA-Public Use
  Company Number: US-ABBOTT-08P-163-0495200-00

PATIENT
  Sex: Female
  Weight: 61.29 kg

DRUGS (2)
  1. HUMIRA [Suspect]
     Indication: CROHN'S DISEASE
     Dates: start: 20081218
  2. HUMIRA [Suspect]

REACTIONS (3)
  - INJECTION SITE HAEMATOMA [None]
  - INJECTION SITE RASH [None]
  - INJECTION SITE SWELLING [None]
